FAERS Safety Report 5130573-5 (Version None)
Quarter: 2006Q4

REPORT INFORMATION
  Report Type: 
  Country: None (occurrence: None)
  Receive Date: 20061013
  Receipt Date: 20060926
  Transmission Date: 20070319
  Serious: Yes (Hospitalization)
  Sender: FDA-Public Use
  Company Number: USA031253887

PATIENT
  Age: 64 Year
  Sex: Female
  Weight: 43.2 kg

DRUGS (21)
  1. FORTEO [Suspect]
     Indication: OSTEOPENIA
     Dosage: 20 UG, DAILY (1/D)
     Dates: start: 20031203
  2. ADVAIR HFA [Concomitant]
  3. FLOVENT [Concomitant]
  4. TEQUIN [Concomitant]
  5. EFFEXOR [Concomitant]
  6. VITAMINS [Concomitant]
  7. CALCIUM GLUCONATE [Concomitant]
  8. ACCOLATE [Concomitant]
  9. PROVENTIL [Concomitant]
  10. ATROVENT [Concomitant]
  11. ENTEX LA [Concomitant]
  12. COMBIVENT [Concomitant]
  13. VALIUM [Concomitant]
  14. VALTREX [Concomitant]
  15. VOLMAX [Concomitant]
  16. OXYGEN [Concomitant]
  17. MIACALCIN [Concomitant]
  18. ACTONEL [Concomitant]
  19. NASONEX [Concomitant]
  20. AMI-TEX LA [Concomitant]
  21. FORTEO [Concomitant]

REACTIONS (28)
  - ABDOMINAL PAIN LOWER [None]
  - ARTHRALGIA [None]
  - ASTHENIA [None]
  - ASTHMA [None]
  - CHILLS [None]
  - CONDITION AGGRAVATED [None]
  - DIZZINESS [None]
  - EMPHYSEMA [None]
  - FALL [None]
  - FATIGUE [None]
  - FEAR [None]
  - INFLUENZA [None]
  - INJECTION SITE IRRITATION [None]
  - INJECTION SITE PAIN [None]
  - LOSS OF CONSCIOUSNESS [None]
  - LUNG INFECTION [None]
  - MALAISE [None]
  - MUSCLE SPASMS [None]
  - NAUSEA [None]
  - NERVOUSNESS [None]
  - NOSOCOMIAL INFECTION [None]
  - PAIN [None]
  - PAIN IN EXTREMITY [None]
  - PHARMACEUTICAL PRODUCT COMPLAINT [None]
  - POST PROCEDURAL COMPLICATION [None]
  - POSTNASAL DRIP [None]
  - PULMONARY CONGESTION [None]
  - SOMNOLENCE [None]
